FAERS Safety Report 17230837 (Version 1)
Quarter: 2020Q1

REPORT INFORMATION
  Report Type: Spontaneous
  Country: IT (occurrence: IT)
  Receive Date: 20200103
  Receipt Date: 20200103
  Transmission Date: 20200409
  Serious: Yes (Hospitalization)
  Sender: FDA-Public Use
  Company Number: IT-MYLANLABS-2019M1132543

PATIENT
  Sex: Female

DRUGS (1)
  1. BRUFEN [Suspect]
     Active Substance: IBUPROFEN
     Indication: PRODUCT USED FOR UNKNOWN INDICATION
     Dosage: 1 TABLET
     Route: 065

REACTIONS (4)
  - Drug interaction [Recovered/Resolved]
  - Lip swelling [Recovered/Resolved]
  - Periorbital swelling [Recovered/Resolved]
  - Hypersensitivity [Recovered/Resolved]

NARRATIVE: CASE EVENT DATE: 20190821
